FAERS Safety Report 9715282 (Version 1)
Quarter: 2013Q4

REPORT INFORMATION
  Report Type: Spontaneous
  Country: US (occurrence: US)
  Receive Date: 20131127
  Receipt Date: 20131127
  Transmission Date: 20140711
  Serious: Yes (Other)
  Sender: FDA-Public Use
  Company Number: US-AMGEN-USASP2013082346

PATIENT
  Age: 56 Year
  Sex: Female

DRUGS (4)
  1. PROLIA [Suspect]
     Indication: OSTEOPOROSIS
     Dosage: 60 MG, Q6MO
     Route: 058
     Dates: start: 201301
  2. CALCIUM [Concomitant]
     Dosage: 300 MG, QD
  3. MULTIVITAMIN                       /00097801/ [Concomitant]
     Dosage: 800 MG, QD
  4. VITAMIN D                          /00107901/ [Concomitant]

REACTIONS (1)
  - Colitis ulcerative [Recovered/Resolved]
